FAERS Safety Report 14928868 (Version 1)
Quarter: 2018Q2

REPORT INFORMATION
  Report Type: Spontaneous
  Country: US (occurrence: US)
  Receive Date: 20180504
  Receipt Date: 20180504
  Transmission Date: 20180711
  Serious: Yes (Other)
  Sender: FDA-Public Use
  Company Number: None

PATIENT
  Age: 58 Year
  Sex: Female
  Weight: 97.65 kg

DRUGS (33)
  1. ESTRADIOL TRANSDERMAL SYSTEM, USP (TWICE WEEKLY) 0.1 MG/DAY [Suspect]
     Active Substance: ESTRADIOL
     Indication: MENOPAUSE
     Dosage: ?          QUANTITY:1 PATCH(ES);OTHER FREQUENCY:TWICE WEEKLY;?
     Route: 062
  2. MAGNESIUM CITRATE. [Concomitant]
     Active Substance: MAGNESIUM CITRATE
  3. UBIQUINOL [Concomitant]
     Active Substance: UBIQUINOL
  4. PROBIOTICS (JARRO-DOPHILUS EPS) [Concomitant]
  5. ARMOUR THYROID [Concomitant]
     Active Substance: THYROID, PORCINE
  6. AZELEX CREAM [Concomitant]
  7. BUPROPION HCL [Concomitant]
     Active Substance: BUPROPION HYDROCHLORIDE
  8. CERTERIZINE [Concomitant]
  9. ESTRADIOL. [Concomitant]
     Active Substance: ESTRADIOL
  10. ALLERGY IMMUNOTHERAPY [Concomitant]
  11. VITAMIN B-2 [Concomitant]
  12. GLUCOSAMINE HCL/CHONDROITIN SULFATE [Concomitant]
  13. MELOXICAM. [Concomitant]
     Active Substance: MELOXICAM
  14. BIOTIN [Concomitant]
     Active Substance: BIOTIN
  15. LEVELRIGHT (NUNATURALS) [Concomitant]
  16. MONTELUKAST SODIUM. [Concomitant]
     Active Substance: MONTELUKAST SODIUM
  17. SULFACETAMIDE SODIUM TOPICAL WASH [Concomitant]
  18. SERTRALINE HCL [Concomitant]
     Active Substance: SERTRALINE HYDROCHLORIDE
  19. EPIPEN [Concomitant]
     Active Substance: EPINEPHRINE
  20. OMEPRAZOLE DR [Concomitant]
     Active Substance: OMEPRAZOLE
  21. VITAMIN CODE MULTI (GARDEN OF LIFE) [Concomitant]
  22. CURCUMIN [Concomitant]
     Active Substance: CURCUMIN
  23. DHEA [Concomitant]
     Active Substance: PRASTERONE
  24. BACLOFEN. [Concomitant]
     Active Substance: BACLOFEN
  25. CLINDAMYCIN PHOS FOAM [Concomitant]
  26. FLUNISOLIDE. [Concomitant]
     Active Substance: FLUNISOLIDE
  27. TESSALON [Concomitant]
     Active Substance: BENZONATATE
  28. D3-CHOLECALCIFEROL [Concomitant]
  29. NATTOKINASE [Concomitant]
     Active Substance: NATTOKINASE
  30. FAMCICLOVIR. [Concomitant]
     Active Substance: FAMCICLOVIR
  31. FIORICET (BUTALBITAL, ACETAMINOPHEN, CAFFEINE) [Concomitant]
  32. PSEUDOEPHEDRINE [Concomitant]
     Active Substance: PSEUDOEPHEDRINE
  33. OMEGA-3 KRILL OIL [Concomitant]

REACTIONS (4)
  - Application site rash [None]
  - Application site bruise [None]
  - Application site pruritus [None]
  - Hypersensitivity [None]

NARRATIVE: CASE EVENT DATE: 20180503
